FAERS Safety Report 4641384-9 (Version None)
Quarter: 2005Q2

REPORT INFORMATION
  Report Type: 
  Country: None (occurrence: None)
  Receive Date: 20050421
  Receipt Date: 20050408
  Transmission Date: 20051028
  Serious: Yes (Hospitalization)
  Sender: FDA-Public Use
  Company Number: US-GLAXOSMITHKLINE-A0553303A

PATIENT
  Age: 63 Year
  Sex: Female
  Weight: 81 kg

DRUGS (15)
  1. TUMS E-X TABLETS, SUGAR FREE ORANGE [Suspect]
     Route: 048
     Dates: start: 19750101
  2. VIOXX [Suspect]
     Route: 048
  3. CELEBREX [Suspect]
     Route: 048
  4. BEXTRA [Suspect]
     Route: 048
  5. SYNTHROID [Concomitant]
     Indication: HYPOTHYROIDISM
     Route: 048
  6. TOPROL-XL [Concomitant]
     Route: 048
  7. ZANTAC [Concomitant]
     Route: 048
  8. ASPIRIN [Concomitant]
     Route: 048
  9. AVANDIA [Concomitant]
     Route: 048
  10. NORVASC [Concomitant]
     Route: 048
  11. IMDUR [Concomitant]
     Route: 048
  12. ALTACE [Concomitant]
     Route: 048
  13. PLAVIX [Concomitant]
     Route: 048
  14. CATAPRES-TTS-1 [Concomitant]
     Indication: BLOOD PRESSURE
  15. LIPITOR [Concomitant]
     Route: 048

REACTIONS (7)
  - ANAEMIA [None]
  - ARTHRITIS [None]
  - CHEST PAIN [None]
  - CORONARY ARTERY STENOSIS [None]
  - MYOCARDIAL INFARCTION [None]
  - RENAL FAILURE ACUTE [None]
  - TOOTH INFECTION [None]
